FAERS Safety Report 6639573-7 (Version None)
Quarter: 2010Q1

REPORT INFORMATION
  Report Type: 
  Country: None (occurrence: None)
  Receive Date: 20100318
  Receipt Date: 20100308
  Transmission Date: 20100710
  Serious: Yes (Other)
  Sender: FDA-Public Use
  Company Number: US-JNJFOC-20100302734

PATIENT
  Sex: Male
  Weight: 35.38 kg

DRUGS (4)
  1. CONCERTA [Suspect]
     Indication: ATTENTION DEFICIT/HYPERACTIVITY DISORDER
     Route: 048
  2. RISPERIDONE [Concomitant]
     Indication: DERMATILLOMANIA
     Route: 048
  3. RISPERIDONE [Concomitant]
     Indication: ANXIETY
     Route: 048
  4. ALLEGRA [Concomitant]
     Indication: SEASONAL ALLERGY
     Route: 048

REACTIONS (4)
  - DISTURBANCE IN ATTENTION [None]
  - GROWTH RETARDATION [None]
  - MIGRAINE [None]
  - PRODUCT QUALITY ISSUE [None]
